FAERS Safety Report 14609926 (Version 1)
Quarter: 2018Q1

REPORT INFORMATION
  Report Type: Spontaneous
  Country: US (occurrence: US)
  Receive Date: 20180307
  Receipt Date: 20180307
  Transmission Date: 20180509
  Serious: Yes (Hospitalization)
  Sender: FDA-Public Use
  Company Number: None

PATIENT
  Sex: Female

DRUGS (4)
  1. CINRYZE 500UNIT [Concomitant]
  2. TIROSINT 25MCG [Concomitant]
  3. FIRAZYR [Concomitant]
     Active Substance: ICATIBANT ACETATE
  4. LUPRON [Suspect]
     Active Substance: LEUPROLIDE ACETATE
     Indication: ENDOMETRIOSIS
     Dosage: ?          OTHER FREQUENCY:ONCE A MONTH;?
     Route: 030

REACTIONS (2)
  - Wrong schedule [None]
  - Hospitalisation [None]
